FAERS Safety Report 19131825 (Version 1)
Quarter: 2021Q2

REPORT INFORMATION
  Report Type: Report from Study
  Country: CA (occurrence: CA)
  Receive Date: 20210413
  Receipt Date: 20210413
  Transmission Date: 20210717
  Serious: Yes (Other)
  Sender: FDA-Public Use
  Company Number: CA-PFIZER INC-2021353699

PATIENT
  Sex: Male
  Weight: 95 kg

DRUGS (10)
  1. NASONEX [Concomitant]
     Active Substance: MOMETASONE FUROATE
  2. MYCOPHENOLATE MOFETIL. [Suspect]
     Active Substance: MYCOPHENOLATE MOFETIL
     Indication: PEMPHIGUS
     Dosage: 1.5 G, 2X/DAY
     Route: 065
  3. BENADRYL [Concomitant]
     Active Substance: DIPHENHYDRAMINE HYDROCHLORIDE
     Dosage: 50 MG
     Route: 048
  4. PROZAC [Concomitant]
     Active Substance: FLUOXETINE HYDROCHLORIDE
  5. TYLENOL [Concomitant]
     Active Substance: ACETAMINOPHEN
     Indication: PREMEDICATION
     Dosage: 650 MG
     Route: 048
  6. FORMOTEROL FUMARATE/MOMETASONE FUROATE [Concomitant]
     Active Substance: FORMOTEROL FUMARATE\MOMETASONE FUROATE
  7. ASPIRIN [ACETYLSALICYLIC ACID] [Concomitant]
     Active Substance: ASPIRIN
     Dosage: UNK, 1X/DAY
     Route: 065
  8. METHYLPREDNISOLONE SODIUM SUCCINATE. [Concomitant]
     Active Substance: METHYLPREDNISOLONE SODIUM SUCCINATE
     Indication: PREMEDICATION
     Dosage: 100 MG
     Route: 042
  9. RITUXIMAB. [Suspect]
     Active Substance: RITUXIMAB
     Indication: PEMPHIGUS
     Dosage: UNK
     Route: 042
  10. RITUXIMAB. [Suspect]
     Active Substance: RITUXIMAB
     Indication: PEMPHIGUS
     Dosage: 1000 MG 1 EVERY 15 DAYS
     Route: 042

REACTIONS (2)
  - Aphonia [Unknown]
  - Asthma [Unknown]
